FAERS Safety Report 14018288 (Version 1)
Quarter: 2017Q3

REPORT INFORMATION
  Report Type: Spontaneous
  Country: US (occurrence: US)
  Receive Date: 20170927
  Receipt Date: 20170927
  Transmission Date: 20171128
  Serious: Yes (Other)
  Sender: FDA-Public Use
  Company Number: None

PATIENT
  Age: 48 Year
  Sex: Female
  Weight: 54.45 kg

DRUGS (3)
  1. CLINDAMYCIN. [Suspect]
     Active Substance: CLINDAMYCIN
  2. OTC OMPEPRAZOLE [Suspect]
     Active Substance: OMEPRAZOLE SODIUM
  3. FLAGYL [Suspect]
     Active Substance: METRONIDAZOLE\METRONIDAZOLE HYDROCHLORIDE

REACTIONS (8)
  - Infection [None]
  - Nausea [None]
  - Influenza [None]
  - Rash [None]
  - Vomiting [None]
  - Arthropod bite [None]
  - Pain [None]
  - Clostridium difficile colitis [None]

NARRATIVE: CASE EVENT DATE: 20170905
